FAERS Safety Report 20292490 (Version 1)
Quarter: 2022Q1

REPORT INFORMATION
  Report Type: Spontaneous
  Country: US (occurrence: US)
  Receive Date: 20220104
  Receipt Date: 20220104
  Transmission Date: 20220423
  Serious: No
  Sender: FDA-Public Use
  Company Number: US-GALDERMA-US2021019195

PATIENT

DRUGS (10)
  1. PROACTIV MD ADAPALENE ACNE TREATMENT [Suspect]
     Active Substance: ADAPALENE
     Indication: Product used for unknown indication
     Dosage: 1 DOSAGE FORM, BIW
     Route: 061
     Dates: start: 20210815, end: 202108
  2. PROACTIV MD ADAPALENE ACNE TREATMENT [Suspect]
     Active Substance: ADAPALENE
     Dosage: 1 DOSAGE FORM, BIW
     Route: 061
     Dates: start: 202108, end: 202108
  3. PROACTIV MD DAILY OIL CONTROL SPF 30 [Suspect]
     Active Substance: AVOBENZONE\OCTISALATE\OCTOCRYLENE
     Indication: Product used for unknown indication
     Dosage: 1 DOSAGE FORM, BIW
     Route: 061
     Dates: start: 20210815, end: 202108
  4. PROACTIV MD DAILY OIL CONTROL SPF 30 [Suspect]
     Active Substance: AVOBENZONE\OCTISALATE\OCTOCRYLENE
     Dosage: 1 DOSAGE FORM, BIW
     Route: 061
     Dates: start: 202108, end: 202108
  5. Proactiv MD Ultra Gentle Cleanser [Concomitant]
     Indication: Product used for unknown indication
     Dosage: 1 DOSAGE FORM, BIW
     Route: 061
     Dates: start: 20210815, end: 202108
  6. Proactiv MD Ultra Gentle Cleanser [Concomitant]
     Dosage: 1 DOSAGE FORM, BIW
     Route: 061
     Dates: start: 202108, end: 202108
  7. Proactiv MD Ultra Hydrating Moisturizer [Concomitant]
     Indication: Product used for unknown indication
     Dosage: 1 DOSAGE FORM, BIW
     Route: 061
     Dates: start: 20210815, end: 202108
  8. Proactiv MD Ultra Hydrating Moisturizer [Concomitant]
     Dosage: 1 DOSAGE FORM, BIW
     Route: 061
     Dates: start: 202108, end: 202108
  9. COSMETICS [Concomitant]
     Active Substance: COSMETICS
     Indication: Product used for unknown indication
     Dosage: 1 DOSAGE FORM, BIW
     Route: 061
     Dates: start: 20210815, end: 202108
  10. COSMETICS [Concomitant]
     Active Substance: COSMETICS
     Dosage: 1 DOSAGE FORM, BIW
     Route: 061
     Dates: start: 202108, end: 202108

REACTIONS (6)
  - Blister [Recovering/Resolving]
  - Skin burning sensation [Recovering/Resolving]
  - Skin injury [Recovering/Resolving]
  - Product use issue [Recovered/Resolved]
  - Underdose [Recovered/Resolved]
  - Inappropriate schedule of product administration [Recovered/Resolved]

NARRATIVE: CASE EVENT DATE: 20210815
